FAERS Safety Report 7833798-0 (Version None)
Quarter: 2011Q4

REPORT INFORMATION
  Report Type: 
  Country: None (occurrence: None)
  Receive Date: 20111024
  Receipt Date: 20111014
  Transmission Date: 20120403
  Serious: Yes (Other)
  Sender: FDA-Public Use
  Company Number: JP-ROCHE-803791

PATIENT
  Sex: Male
  Weight: 52 kg

DRUGS (6)
  1. PREDNISOLONE [Concomitant]
     Route: 048
  2. LIVALO [Concomitant]
     Route: 054
  3. NITRODERM [Concomitant]
     Dosage: FORM: TAPE
     Route: 062
  4. ACTEMRA [Suspect]
     Indication: RHEUMATOID ARTHRITIS
     Route: 041
     Dates: start: 20081009, end: 20110221
  5. TICLOPIDINE HCL [Concomitant]
     Route: 048
  6. SULFASALAZINE [Concomitant]
     Route: 048

REACTIONS (1)
  - OSTEONECROSIS [None]
